FAERS Safety Report 6999904-5 (Version None)
Quarter: 2010Q3

REPORT INFORMATION
  Report Type: 
  Country: None (occurrence: None)
  Receive Date: 20100920
  Receipt Date: 20071113
  Transmission Date: 20110219
  Serious: Yes (Other)
  Sender: FDA-Public Use
  Company Number: US-ASTRAZENECA-2007UW03755

PATIENT
  Age: 55 Year
  Sex: Female

DRUGS (16)
  1. SEROQUEL [Suspect]
     Indication: DEPRESSION
     Dosage: 100 - 200 MG DAILY
     Route: 048
     Dates: start: 19990409
  2. SEROQUEL [Suspect]
     Route: 048
     Dates: start: 20011201
  3. LASIX [Concomitant]
     Dosage: 40 - 80 MG DAILY
     Route: 048
     Dates: start: 20041105
  4. SYNTHROID [Concomitant]
     Route: 048
     Dates: start: 20030115
  5. LOVASTATIN [Concomitant]
     Route: 048
     Dates: start: 20071022
  6. LYRICA [Concomitant]
     Route: 048
     Dates: start: 20070827
  7. BUSPAR [Concomitant]
     Route: 048
     Dates: start: 20070827
  8. LEXAPRO [Concomitant]
     Route: 048
     Dates: start: 20070827
  9. PLAVIX [Concomitant]
     Route: 048
     Dates: start: 20070827
  10. LOPRESSOR [Concomitant]
     Route: 048
     Dates: start: 20070827
  11. PROZAC [Concomitant]
     Route: 048
     Dates: start: 20030115
  12. TRAZODONE HCL [Concomitant]
     Indication: SLEEP DISORDER
     Dosage: 50 - 100 MG AT NIGHT
     Route: 048
     Dates: start: 19980605
  13. ZOCOR [Concomitant]
     Route: 048
     Dates: start: 20030115
  14. LORAZEPAM [Concomitant]
     Indication: ANXIETY
     Route: 048
     Dates: start: 19980605
  15. VERAPAMIL [Concomitant]
     Indication: HYPERTENSION
     Route: 048
     Dates: start: 19980605
  16. LUVOX [Concomitant]
     Indication: DEPRESSION
     Route: 048
     Dates: start: 19980605

REACTIONS (3)
  - DIABETES MELLITUS [None]
  - HYPERGLYCAEMIA [None]
  - PANCREATITIS ACUTE [None]
